FAERS Safety Report 9251315 (Version 1)
Quarter: 2013Q1

REPORT INFORMATION
  Report Type: Spontaneous
  Country: US (occurrence: None)
  Receive Date: 20130305
  Receipt Date: 20130305
  Transmission Date: 20140127
  Serious: Yes (Hospitalization, Other)
  Sender: FDA-Public Use
  Company Number: 163-21880-12060144 (0)

PATIENT
  Sex: 0

DRUGS (3)
  1. REVLIMID [Suspect]
     Indication: PLASMA CELL MYELOMA
     Dosage: DAYS 1-21
     Route: 048
  2. DEXAMETHASONE [Suspect]
     Indication: PLASMA CELL MYELOMA
     Dosage: DAYS 1, 8, 15, 2, UP TO 12 28D CYCLES
     Route: 048
  3. MLN9708 [Suspect]
     Indication: PLASMA CELL MYELOMA
     Dosage: 1.68-3.95MG/M2, DAYS 1, 8, AND 15, PO
     Route: 048

REACTIONS (5)
  - Anaemia [None]
  - Thrombocytopenia [None]
  - Rash erythematous [None]
  - Syncope [None]
  - Vomiting [None]
